FAERS Safety Report 5165093-5 (Version None)
Quarter: 2006Q4

REPORT INFORMATION
  Report Type: 
  Country: None (occurrence: None)
  Receive Date: 20061124
  Receipt Date: 20061110
  Transmission Date: 20070319
  Serious: Yes (Hospitalization, Other)
  Sender: FDA-Public Use
  Company Number: 2006115801

PATIENT
  Age: 68 Year
  Sex: Female
  Weight: 67.4 kg

DRUGS (4)
  1. ZYVOX [Suspect]
     Indication: PLEURISY
     Dosage: INTRAVENOUS
     Route: 042
     Dates: start: 20060907, end: 20060919
  2. ZYVOX [Suspect]
     Indication: STAPHYLOCOCCAL INFECTION
     Dosage: INTRAVENOUS
     Route: 042
     Dates: start: 20060907, end: 20060919
  3. TAXOL [Concomitant]
  4. HUMULIN R (HUMAN INSULIN; GENETICAL RECOMBINATION) (INSULIN HUMAN) [Concomitant]

REACTIONS (3)
  - HYPOKALAEMIA [None]
  - HYPONATRAEMIA [None]
  - PANCYTOPENIA [None]
